FAERS Safety Report 22160159 (Version 1)
Quarter: 2023Q1

REPORT INFORMATION
  Report Type: Report from Study
  Country: US (occurrence: US)
  Receive Date: 20230331
  Receipt Date: 20230331
  Transmission Date: 20230417
  Serious: Yes (Hospitalization, Other)
  Sender: FDA-Public Use
  Company Number: US-ALNYLAM PHARMACEUTICALS, INC.-ALN-2023-001259

PATIENT

DRUGS (2)
  1. ONPATTRO [Suspect]
     Active Substance: PATISIRAN SODIUM
     Indication: Hereditary neuropathic amyloidosis
     Dosage: UNK
     Route: 065
     Dates: start: 20220523
  2. ONPATTRO [Suspect]
     Active Substance: PATISIRAN SODIUM
     Dosage: UNK
     Route: 065
     Dates: start: 20230222

REACTIONS (12)
  - Encephalopathy [Unknown]
  - Urinary tract infection [Unknown]
  - Blood potassium increased [Unknown]
  - Cardiac failure congestive [Unknown]
  - Heart rate decreased [Unknown]
  - Conduction disorder [Unknown]
  - Hospitalisation [Unknown]
  - Feeding disorder [Unknown]
  - Onychoclasis [Unknown]
  - Product dose omission issue [Unknown]
  - Endotracheal intubation [Unknown]
  - Cardiac pacemaker insertion [Unknown]

NARRATIVE: CASE EVENT DATE: 20230315
